FAERS Safety Report 9515597 (Version 3)
Quarter: 2013Q4

REPORT INFORMATION
  Report Type: Spontaneous
  Country: CA (occurrence: CA)
  Receive Date: 20130911
  Receipt Date: 20131205
  Transmission Date: 20140711
  Serious: Yes (Hospitalization)
  Sender: FDA-Public Use
  Company Number: CA-ASTELLAS-2013US009474

PATIENT
  Age: 48 Year
  Sex: Male

DRUGS (15)
  1. ADVAGRAF [Suspect]
     Indication: RENAL TRANSPLANT
     Dosage: 8 MG, UID/QD
     Route: 048
     Dates: start: 20130816
  2. ADVAGRAF [Suspect]
     Dosage: 4 MG, UID/QD
     Route: 048
     Dates: start: 20130819
  3. ASPIRIN [Concomitant]
     Indication: PRODUCT USED FOR UNKNOWN INDICATION
     Dosage: 81 MG, UID/QD
     Route: 065
  4. PREDNISONE [Concomitant]
     Indication: PRODUCT USED FOR UNKNOWN INDICATION
     Dosage: 20 MG, UID/QD
     Route: 065
  5. MYFORTIC [Concomitant]
     Indication: PRODUCT USED FOR UNKNOWN INDICATION
     Dosage: 720 MG, Q12 HOURS
     Route: 065
  6. SEPTRA DS [Concomitant]
     Indication: PRODUCT USED FOR UNKNOWN INDICATION
     Dosage: 1 DF, 3XWEEKLY
     Route: 065
  7. VALGANCICLOVIR [Concomitant]
     Indication: PRODUCT USED FOR UNKNOWN INDICATION
     Dosage: 900 MG, UID/QD
     Route: 065
  8. AMIODARONE [Concomitant]
     Indication: PRODUCT USED FOR UNKNOWN INDICATION
     Dosage: 200 MG, UID/QD
     Route: 065
  9. METOPROLOL [Concomitant]
     Indication: PRODUCT USED FOR UNKNOWN INDICATION
     Dosage: 12.5 MG, BID
     Route: 065
  10. LANSOPRAZOLE [Concomitant]
     Indication: PRODUCT USED FOR UNKNOWN INDICATION
     Dosage: 30 MG, BID
     Route: 065
  11. COLACE [Concomitant]
     Indication: PRODUCT USED FOR UNKNOWN INDICATION
     Dosage: 100 MG, BID
     Route: 065
  12. LACTULOSE [Concomitant]
     Indication: PRODUCT USED FOR UNKNOWN INDICATION
     Dosage: 15 ML, BID
     Route: 065
  13. CALCIUM CARBONATE [Concomitant]
     Indication: PRODUCT USED FOR UNKNOWN INDICATION
     Dosage: 1250 MG, TID
     Route: 065
  14. TAMSULOSIN [Concomitant]
     Indication: PRODUCT USED FOR UNKNOWN INDICATION
     Dosage: 0.4 MG, QHS
     Route: 065
  15. WARFARIN [Concomitant]
     Indication: PRODUCT USED FOR UNKNOWN INDICATION
     Dosage: 4 MG, UID/QD
     Route: 065

REACTIONS (6)
  - Immunosuppressant drug level increased [Unknown]
  - Abdominal pain [Unknown]
  - Urine output decreased [Recovered/Resolved]
  - Blood creatinine increased [Recovered/Resolved]
  - Blood urine present [Recovered/Resolved]
  - International normalised ratio increased [Recovered/Resolved]
